FAERS Safety Report 23740670 (Version 1)
Quarter: 2024Q2

REPORT INFORMATION
  Report Type: Spontaneous
  Country: CN (occurrence: CN)
  Receive Date: 20240415
  Receipt Date: 20240415
  Transmission Date: 20240715
  Serious: Yes (Hospitalization, Other)
  Sender: FDA-Public Use
  Company Number: CN-Inventia-000718

PATIENT
  Age: 38 Year
  Sex: Female

DRUGS (6)
  1. DULOXETINE [Suspect]
     Active Substance: DULOXETINE
     Indication: Eosinophilic granulomatosis with polyangiitis
  2. METHYLPREDNISOLONE [Concomitant]
     Active Substance: METHYLPREDNISOLONE
     Indication: Eosinophilic granulomatosis with polyangiitis
     Dosage: 1 G/D-3 D, 80 MG/D FOR OTHER 3 D, SUBSEQUENTLY TAPERED STARTING FROM 1 MG/KG/D
     Route: 042
  3. CYCLOPHOSPHAMIDE [Concomitant]
     Active Substance: CYCLOPHOSPHAMIDE
     Indication: Eosinophilic granulomatosis with polyangiitis
     Dosage: (0.8 G/MONTH)
     Route: 042
  4. WARFARIN [Concomitant]
     Active Substance: WARFARIN
     Indication: Eosinophilic granulomatosis with polyangiitis
     Route: 048
  5. BERAPROST SODIUM [Concomitant]
     Active Substance: BERAPROST SODIUM
     Indication: Eosinophilic granulomatosis with polyangiitis
  6. VITAMIN B12 [Concomitant]
     Active Substance: CYANOCOBALAMIN
     Indication: Eosinophilic granulomatosis with polyangiitis

REACTIONS (1)
  - Toxic epidermal necrolysis [Recovered/Resolved]
